FAERS Safety Report 8838538 (Version 1)
Quarter: 2012Q4

REPORT INFORMATION
  Report Type: 
  Country: JP (occurrence: JP)
  Receive Date: 20121012
  Receipt Date: 20121012
  Transmission Date: 20130627
  Serious: Yes (Hospitalization)
  Sender: FDA-Public Use
  Company Number: JP-AMGEN-JPNCT2012065134

PATIENT
  Age: 89 Year
  Sex: Female
  Weight: 59 kg

DRUGS (34)
  1. DARBEPOETIN ALFA [Suspect]
     Indication: NEPHROGENIC ANAEMIA
     Dosage: 30 mug, qd
     Route: 058
     Dates: start: 20110609, end: 20110609
  2. DARBEPOETIN ALFA [Suspect]
     Dosage: 60 mug, qd
     Route: 058
     Dates: start: 20110714, end: 20110714
  3. DARBEPOETIN ALFA [Suspect]
     Dosage: 30 mug, qd
     Route: 058
     Dates: start: 20110818, end: 20110818
  4. DARBEPOETIN ALFA [Suspect]
     Dosage: 30 mug, qd
     Route: 058
     Dates: start: 20111125, end: 20111125
  5. DARBEPOETIN ALFA [Suspect]
     Dosage: 40 mug, qd
     Route: 058
     Dates: start: 20111208
  6. BAYASPIRIN [Concomitant]
     Dosage: UNK
     Route: 048
  7. TAKEPRON [Concomitant]
     Dosage: UNK
     Route: 048
  8. AMLODIPINE [Concomitant]
     Dosage: UNK
     Route: 048
  9. FLUITRAN [Concomitant]
     Dosage: UNK
     Route: 048
  10. LASIX [Concomitant]
     Dosage: UNK
     Route: 048
  11. OLMETEC [Concomitant]
     Dosage: UNK
     Route: 048
  12. ACTOS [Concomitant]
     Dosage: UNK
     Route: 048
  13. MAGNESIUM OXIDE [Concomitant]
     Dosage: UNK
     Route: 048
  14. PROCYLIN [Concomitant]
     Dosage: UNK
     Route: 048
  15. MEVALOTIN [Concomitant]
     Dosage: UNK
     Route: 048
  16. ALLEGRA [Concomitant]
     Dosage: UNK
     Route: 048
  17. BASEN [Concomitant]
     Dosage: UNK
     Route: 048
  18. SOLANAX [Concomitant]
     Dosage: UNK
     Route: 048
  19. TERNELIN [Concomitant]
     Dosage: UNK
     Route: 048
  20. ARTIST [Concomitant]
     Dosage: UNK
     Route: 048
  21. FERROMIA [Concomitant]
     Dosage: UNK
     Route: 048
  22. NOVORAPID [Concomitant]
     Dosage: UNK
     Route: 065
  23. KAKKONTOU [Concomitant]
     Dosage: UNK
     Route: 048
  24. FEBURIC [Concomitant]
     Dosage: UNK
     Route: 048
  25. JANUVIA [Concomitant]
     Dosage: UNK
     Route: 048
  26. CRESTOR [Concomitant]
     Dosage: UNK
     Route: 048
  27. MAINTATE [Concomitant]
     Dosage: UNK
     Route: 048
  28. ADALAT CR [Concomitant]
     Dosage: UNK
     Route: 048
  29. ALOSENN [Concomitant]
     Dosage: UNK
     Route: 048
  30. LAXOBERON [Concomitant]
     Dosage: UNK
     Route: 048
  31. HUMULIN R [Concomitant]
     Dosage: UNK
     Route: 065
  32. HUMULIN N [Concomitant]
     Dosage: UNK
     Route: 065
  33. ADALAT L [Concomitant]
     Dosage: UNK
     Route: 048
  34. ALDACTONE A [Concomitant]
     Dosage: UNK
     Route: 048

REACTIONS (1)
  - Asthma [Recovering/Resolving]
